FAERS Safety Report 6411269-6 (Version None)
Quarter: 2009Q4

REPORT INFORMATION
  Report Type: 
  Country: None (occurrence: None)
  Receive Date: 20091023
  Receipt Date: 20091014
  Transmission Date: 20100525
  Serious: Yes (Other)
  Sender: FDA-Public Use
  Company Number: ES-RANBAXY-2009RR-28674

PATIENT
  Age: 20 Year
  Sex: Female

DRUGS (3)
  1. CETIRIZINE [Suspect]
     Indication: CONJUNCTIVITIS
     Dosage: 10 MG, UNK
  2. LORATADINE [Suspect]
     Indication: CONJUNCTIVITIS
     Dosage: 10 MG, UNK
  3. DEXCHLORPHENIRAMINE [Concomitant]

REACTIONS (1)
  - URTICARIA [None]
